FAERS Safety Report 4681115-X (Version None)
Quarter: 2005Q2

REPORT INFORMATION
  Report Type: 
  Country: None (occurrence: None)
  Receive Date: 20050601
  Receipt Date: 20050517
  Transmission Date: 20051028
  Serious: Yes (Hospitalization, Other)
  Sender: FDA-Public Use
  Company Number: US_980502896

PATIENT
  Age: 74 Year
  Sex: Female
  Weight: 68 kg

DRUGS (11)
  1. HUMALOG [Suspect]
     Indication: DIABETES MELLITUS NON-INSULIN-DEPENDENT
     Dosage: 17 U/2 DAY
     Dates: start: 19980417
  2. HUMULIN N [Suspect]
     Indication: BLOOD GLUCOSE INCREASED
     Dosage: 59 U DAY
  3. LOPID [Concomitant]
  4. INDURGAN (OMEPRAZOLE) [Concomitant]
  5. NORVASC [Concomitant]
  6. ASPIRIN [Concomitant]
  7. LIPITOR [Concomitant]
  8. COZAAR [Concomitant]
  9. METOPROLOL [Concomitant]
  10. NOVOLIN R [Concomitant]
  11. NOVOLIN N [Concomitant]

REACTIONS (12)
  - ARRHYTHMIA [None]
  - BLINDNESS UNILATERAL [None]
  - BLOOD GLUCOSE INCREASED [None]
  - CARDIAC OPERATION [None]
  - CIRCUMSTANCE OR INFORMATION CAPABLE OF LEADING TO MEDICATION ERROR [None]
  - DIARRHOEA [None]
  - JOINT SWELLING [None]
  - MEDICAL DEVICE COMPLICATION [None]
  - MEMORY IMPAIRMENT [None]
  - POST PROCEDURAL COMPLICATION [None]
  - RETINOPATHY [None]
  - UNEVALUABLE EVENT [None]
